FAERS Safety Report 9889225 (Version 1)
Quarter: 2014Q1

REPORT INFORMATION
  Report Type: Spontaneous
  Country: IN (occurrence: IN)
  Receive Date: 20140211
  Receipt Date: 20140211
  Transmission Date: 20141002
  Serious: Yes (Other)
  Sender: FDA-Public Use
  Company Number: PHHY2014IN012780

PATIENT
  Age: 23 Year
  Sex: Female

DRUGS (8)
  1. PREDNISOLONE [Suspect]
     Indication: IMMUNE THROMBOCYTOPENIC PURPURA
     Dosage: 50 MG, QD
  2. PREDNISOLONE [Suspect]
     Dosage: 60 MG, QD
  3. PREDNISOLONE [Suspect]
     Dosage: 10 MG, QD
  4. PREDNISOLONE [Suspect]
     Dosage: 50 MG, QD
  5. METHYLPREDNISOLONE [Suspect]
     Indication: IMMUNE THROMBOCYTOPENIC PURPURA
     Dosage: 100 MG, TID
     Route: 042
  6. IMMUNOGLOBULINS [Suspect]
     Indication: IMMUNE THROMBOCYTOPENIC PURPURA
     Dosage: 1 G/KG, EVERY ALTERNATE DAY
     Route: 042
  7. INSULIN [Suspect]
     Indication: GESTATIONAL DIABETES
  8. OXYTOCIN [Concomitant]
     Indication: LABOUR INDUCTION

REACTIONS (6)
  - Thrombocytopenia [Unknown]
  - Premature delivery [Unknown]
  - Gestational diabetes [Unknown]
  - Preterm premature rupture of membranes [Unknown]
  - Maternal exposure during pregnancy [Unknown]
  - Drug ineffective [Unknown]
